FAERS Safety Report 22782780 (Version 2)
Quarter: 2024Q4

REPORT INFORMATION
  Report Type: Spontaneous
  Country: US (occurrence: US)
  Receive Date: 20230803
  Receipt Date: 20241022
  Transmission Date: 20250115
  Serious: Yes (Hospitalization, Other)
  Sender: RANBAXY
  Company Number: US-SUN PHARMACEUTICAL INDUSTRIES LTD-2023R1-402042

PATIENT
  Age: 67 Year
  Sex: Male

DRUGS (1)
  1. ATENOLOL [Suspect]
     Active Substance: ATENOLOL
     Indication: Chronic kidney disease
     Dosage: 50 MILLIGRAM, QD
     Route: 065

REACTIONS (1)
  - Acute kidney injury [Recovering/Resolving]
